FAERS Safety Report 24094792 (Version 1)
Quarter: 2024Q3

REPORT INFORMATION
  Report Type: Spontaneous
  Country: CZ (occurrence: None)
  Receive Date: 20240716
  Receipt Date: 20240716
  Transmission Date: 20241017
  Serious: Yes (Other)
  Sender: ORION
  Company Number: None

PATIENT
  Age: 27 Year
  Sex: Male

DRUGS (9)
  1. METHOTREXATE [Suspect]
     Active Substance: METHOTREXATE
     Indication: Acute lymphocytic leukaemia
     Dosage: MAINTENANCE THERAPY
     Dates: start: 202003, end: 202108
  2. DEXAMETHASONE [Suspect]
     Active Substance: DEXAMETHASONE
     Indication: Acute lymphocytic leukaemia recurrent
     Dosage: ON DAYS 1-4 AND 11-14
  3. CYCLOPHOSPHAMIDE [Suspect]
     Active Substance: CYCLOPHOSPHAMIDE
     Indication: Acute lymphocytic leukaemia recurrent
     Dosage: BID ON DAYS 1-3
  4. DOXORUBICIN [Suspect]
     Active Substance: DOXORUBICIN
     Indication: Acute lymphocytic leukaemia recurrent
     Dosage: ON DAY 4
  5. VINCRISTINE [Suspect]
     Active Substance: VINCRISTINE
     Indication: Acute lymphocytic leukaemia recurrent
     Dosage: ON DAYS 4 AND 11
  6. MERCAPTOPURINE [Suspect]
     Active Substance: MERCAPTOPURINE
     Indication: Acute lymphocytic leukaemia recurrent
     Dates: start: 202003, end: 202108
  7. INOTUZUMAB OZOGAMICIN [Concomitant]
     Active Substance: INOTUZUMAB OZOGAMICIN
     Indication: Acute lymphocytic leukaemia recurrent
     Dosage: CYCLIC (DIVIDED INTO 3 DOSES OF 0.5 MG/M2, APPLIED ON DAYS 1, 8 AND 15 (2ND CYCLE))
  8. INOTUZUMAB OZOGAMICIN [Concomitant]
     Active Substance: INOTUZUMAB OZOGAMICIN
     Dosage: CYCLIC (3RD CYCLE)
  9. INOTUZUMAB OZOGAMICIN [Concomitant]
     Active Substance: INOTUZUMAB OZOGAMICIN
     Dosage: CYCLIC (IN 3 SUB-DOSES,0.8 MG/M2 ON DAY 1 AND 0.5 MG/M2 ON DAYS 8 AND 15 (1ST CYCLE))
     Dates: start: 20220518

REACTIONS (4)
  - Transaminases increased [Recovered/Resolved]
  - Drug intolerance [Recovered/Resolved]
  - Hepatotoxicity [Unknown]
  - Myelosuppression [Unknown]

NARRATIVE: CASE EVENT DATE: 20210101
